FAERS Safety Report 25568065 (Version 1)
Quarter: 2025Q3

REPORT INFORMATION
  Report Type: Spontaneous
  Country: US (occurrence: US)
  Receive Date: 20250716
  Receipt Date: 20250716
  Transmission Date: 20251021
  Serious: Yes (Other)
  Sender: PFIZER
  Company Number: US-PFIZER INC-PV202500083314

PATIENT
  Age: 68 Year
  Sex: Female

DRUGS (2)
  1. DOXYCYCLINE HYCLATE [Suspect]
     Active Substance: DOXYCYCLINE HYCLATE
  2. CEFTRIAXONE [Suspect]
     Active Substance: CEFTRIAXONE

REACTIONS (3)
  - Leukopenia [Unknown]
  - Condition aggravated [Unknown]
  - Hypotension [Unknown]
